FAERS Safety Report 12438029 (Version 4)
Quarter: 2016Q3

REPORT INFORMATION
  Report Type: Spontaneous
  Country: IE (occurrence: IE)
  Receive Date: 20160606
  Receipt Date: 20160927
  Transmission Date: 20161109
  Serious: Yes (Hospitalization)
  Sender: FDA-Public Use
  Company Number: IE-PFIZER INC-2016265517

PATIENT
  Age: 50 Year
  Sex: Female

DRUGS (3)
  1. XALKORI [Suspect]
     Active Substance: CRIZOTINIB
     Indication: NON-SMALL CELL LUNG CANCER
     Dosage: 250 MG, UNK
     Dates: start: 201605
  2. XALKORI [Suspect]
     Active Substance: CRIZOTINIB
     Dosage: 200 MG, 2X/DAY
  3. INNOHEP [Concomitant]
     Active Substance: TINZAPARIN SODIUM
     Dosage: UNK

REACTIONS (7)
  - Liver function test increased [Recovered/Resolved]
  - Pulmonary embolism [Unknown]
  - Blood pressure increased [Unknown]
  - Thrombosis [Unknown]
  - Stomatitis [Recovered/Resolved]
  - Fatigue [Unknown]
  - Nausea [Unknown]
